FAERS Safety Report 22020995 (Version 1)
Quarter: 2023Q1

REPORT INFORMATION
  Report Type: Spontaneous
  Country: SE (occurrence: SE)
  Receive Date: 20230222
  Receipt Date: 20230222
  Transmission Date: 20230418
  Serious: Yes (Other)
  Sender: FDA-Public Use
  Company Number: SE-002147023-NVSC2023SE029541

PATIENT

DRUGS (1)
  1. RUXOLITINIB [Suspect]
     Active Substance: RUXOLITINIB
     Indication: Mucocutaneous candidiasis
     Dosage: 15 MG, QD (0.2 MG/KG/DAY)
     Route: 065
     Dates: start: 2017, end: 2019

REACTIONS (3)
  - Product use in unapproved indication [Unknown]
  - Pseudomonas infection [Unknown]
  - Staphylococcal infection [Unknown]
